FAERS Safety Report 17381317 (Version 1)
Quarter: 2020Q1

REPORT INFORMATION
  Report Type: Spontaneous
  Country: US (occurrence: US)
  Receive Date: 20200206
  Receipt Date: 20200206
  Transmission Date: 20200409
  Serious: No
  Sender: FDA-Public Use
  Company Number: US-AMAG PHARMACEUTICALS, INC.-AMAG201900809

PATIENT
  Sex: Female

DRUGS (1)
  1. MAKENA [Suspect]
     Active Substance: HYDROXYPROGESTERONE CAPROATE
     Indication: ACCIDENTAL EXPOSURE TO PRODUCT
     Dosage: UNK
     Route: 065

REACTIONS (2)
  - Accidental exposure to product [Unknown]
  - Eye burns [Not Recovered/Not Resolved]

NARRATIVE: CASE EVENT DATE: 20190225
